FAERS Safety Report 9588241 (Version 1)
Quarter: 2013Q4

REPORT INFORMATION
  Report Type: Spontaneous
  Country: US (occurrence: US)
  Receive Date: 20131003
  Receipt Date: 20131003
  Transmission Date: 20140711
  Serious: No
  Sender: FDA-Public Use
  Company Number: US-AMGEN-USASP2012063356

PATIENT
  Age: 41 Year
  Sex: Male
  Weight: 144.22 kg

DRUGS (6)
  1. ENBREL [Suspect]
     Indication: PSORIATIC ARTHROPATHY
     Dosage: 50 MG/ML, QWK
     Route: 058
  2. PRILOSEC                           /00661201/ [Concomitant]
     Dosage: 10 MG, UNK
  3. GLUCOPHAGE [Concomitant]
     Dosage: 500 MG, UNK
  4. VICTOZA [Concomitant]
     Dosage: 18 MG/3ML
  5. HYZAAR [Concomitant]
     Dosage: 100-25
  6. ASPIRE [Concomitant]
     Dosage: 81 MG,EC

REACTIONS (3)
  - Injection site reaction [Unknown]
  - Injection site erythema [Unknown]
  - Injection site swelling [Unknown]
